FAERS Safety Report 5081332-3 (Version None)
Quarter: 2006Q3

REPORT INFORMATION
  Report Type: 
  Country: None (occurrence: None)
  Receive Date: 20060810
  Receipt Date: 20060802
  Transmission Date: 20061208
  Serious: Yes (Death)
  Sender: FDA-Public Use
  Company Number: 163-21880-06080176

PATIENT

DRUGS (2)
  1. REVLIMID [Suspect]
     Indication: ANAEMIA
  2. REVLIMID [Suspect]
     Indication: MYELODYSPLASTIC SYNDROME

REACTIONS (2)
  - BRAIN DEATH [None]
  - CEREBRAL HAEMORRHAGE [None]
